FAERS Safety Report 10970717 (Version 3)
Quarter: 2016Q4

REPORT INFORMATION
  Report Type: Spontaneous
  Country: IE (occurrence: IE)
  Receive Date: 20150331
  Receipt Date: 20161004
  Transmission Date: 20170206
  Serious: Yes (Other)
  Sender: FDA-Public Use
  Company Number: IE-PFIZER INC-2015083880

PATIENT
  Age: 68 Year
  Sex: Male

DRUGS (12)
  1. INLYTA [Suspect]
     Active Substance: AXITINIB
     Indication: METASTATIC RENAL CELL CARCINOMA
     Dosage: UNK
     Dates: start: 20130606
  2. LOSEC [Concomitant]
     Active Substance: OMEPRAZOLE
     Dosage: 80 MG, UNK
  3. DEXAMETHASONE. [Concomitant]
     Active Substance: DEXAMETHASONE
     Dosage: 2 MG, UNK
  4. SIMVASTATIN. [Concomitant]
     Active Substance: SIMVASTATIN
     Dosage: 20 MG, UNK
  5. BISOPROLOL [Concomitant]
     Active Substance: BISOPROLOL
     Dosage: 1.25 MG, UNK
  6. QUININE [Concomitant]
     Active Substance: QUININE
     Dosage: 300 MG, UNK
  7. ASPIRIN /00002701/ [Concomitant]
     Active Substance: ASPIRIN
     Dosage: 75 MG, UNK
  8. CARDURAXL [Concomitant]
     Dosage: 4 MG, UNK
  9. BURINEX [Concomitant]
     Active Substance: BUMETANIDE
     Dosage: 2 MG, UNK
  10. INLYTA [Suspect]
     Active Substance: AXITINIB
     Dosage: 7 MG,  TWICE DAILY
     Dates: start: 20140401
  11. INLYTA [Suspect]
     Active Substance: AXITINIB
     Dosage: 5 MG, 2X/DAY
  12. ARANESP [Concomitant]
     Active Substance: DARBEPOETIN ALFA
     Dosage: 60 MG, WEEKLY
     Route: 058

REACTIONS (2)
  - Lower respiratory tract infection [Unknown]
  - Decreased appetite [Unknown]
